FAERS Safety Report 17099184 (Version 1)
Quarter: 2019Q4

REPORT INFORMATION
  Report Type: Spontaneous
  Country: US (occurrence: US)
  Receive Date: 20191130
  Receipt Date: 20191130
  Transmission Date: 20200122
  Serious: Yes (Other)
  Sender: FDA-Public Use
  Company Number: None

PATIENT
  Age: 9 Year
  Sex: Male
  Weight: 37.8 kg

DRUGS (1)
  1. CEFDINIR FOR ORAL SUSPENSION, USP 250MG/5ML [Suspect]
     Active Substance: CEFDINIR
     Indication: PHARYNGITIS STREPTOCOCCAL
     Dosage: ?          QUANTITY:5 MILLILITERS;?
     Route: 048
     Dates: start: 20191129, end: 20191129

REACTIONS (3)
  - Product contamination physical [None]
  - Product package associated injury [None]
  - Product container issue [None]

NARRATIVE: CASE EVENT DATE: 20191129
